FAERS Safety Report 4603602-2 (Version None)
Quarter: 2005Q1

REPORT INFORMATION
  Report Type: 
  Country: None (occurrence: None)
  Receive Date: 20050310
  Receipt Date: 20050216
  Transmission Date: 20050727
  Serious: No
  Sender: FDA-Public Use
  Company Number: PHBS2005CA02546

PATIENT
  Age: 48 Year
  Sex: Female

DRUGS (4)
  1. ZELNORM [Suspect]
     Indication: IRRITABLE BOWEL SYNDROME
     Dosage: 6 MG, BID
     Route: 048
     Dates: start: 20040501
  2. ZELNORM [Suspect]
     Dosage: 6 MG, QD
     Dates: end: 20040801
  3. RABEPRAZOLE SODIUM [Concomitant]
  4. GLYBURIDE [Concomitant]

REACTIONS (1)
  - BILIARY COLIC [None]
